FAERS Safety Report 20658666 (Version 1)
Quarter: 2022Q1

REPORT INFORMATION
  Report Type: Spontaneous
  Country: US (occurrence: US)
  Receive Date: 20220331
  Receipt Date: 20220331
  Transmission Date: 20220423
  Serious: Yes (Other)
  Sender: FDA-Public Use
  Company Number: US-PFIZER INC-202200452090

PATIENT
  Age: 58 Year
  Sex: Female

DRUGS (2)
  1. CARBOPLATIN [Suspect]
     Active Substance: CARBOPLATIN
     Dosage: 6 COURSES
  2. TAXOL [Suspect]
     Active Substance: PACLITAXEL
     Dosage: OVER 3 HOURS OF INFUSION, 6 COURSES

REACTIONS (1)
  - Neurotoxicity [Unknown]
